FAERS Safety Report 9058840 (Version 1)
Quarter: 2013Q1

REPORT INFORMATION
  Report Type: Spontaneous
  Country: US (occurrence: US)
  Receive Date: 20130204
  Receipt Date: 20130204
  Transmission Date: 20140127
  Serious: Yes (Other)
  Sender: FDA-Public Use
  Company Number: US-AMGEN-USASP2013005768

PATIENT
  Age: 70 Year
  Sex: Female

DRUGS (7)
  1. PROLIA [Suspect]
     Indication: OSTEOPOROSIS POSTMENOPAUSAL
  2. CELEBREX [Concomitant]
  3. CALCIUM MAGNESIUM WITH VITAMIN D3 [Concomitant]
  4. NEXIUM                             /01479302/ [Concomitant]
  5. STATIN                             /00848101/ [Concomitant]
  6. TRAMADOL [Concomitant]
  7. ROPINIROLE [Concomitant]

REACTIONS (5)
  - Bone formation increased [Unknown]
  - Surgery [Unknown]
  - Pain [Unknown]
  - Mobility decreased [Unknown]
  - Intervertebral disc protrusion [Unknown]
